FAERS Safety Report 25835370 (Version 1)
Quarter: 2025Q3

REPORT INFORMATION
  Report Type: Spontaneous
  Country: US (occurrence: None)
  Receive Date: 20250923
  Receipt Date: 20250923
  Transmission Date: 20251021
  Serious: Yes (Other)
  Sender: ISTITUTO BICHIMICO ITALIANO GIOVANNI LORENZINI (IBIGEN)
  Company Number: US-MLMSERVICE-20250902-PI629522-00263-3

PATIENT
  Sex: Male

DRUGS (2)
  1. PIPERACILLIN SODIUM\TAZOBACTAM SODIUM [Suspect]
     Active Substance: PIPERACILLIN SODIUM\TAZOBACTAM SODIUM
  2. CEFAZOLIN [Suspect]
     Active Substance: CEFAZOLIN

REACTIONS (1)
  - Drug reaction with eosinophilia and systemic symptoms [Unknown]
